FAERS Safety Report 6189734-9 (Version None)
Quarter: 2009Q2

REPORT INFORMATION
  Report Type: 
  Country: None (occurrence: None)
  Receive Date: 20090514
  Receipt Date: 20090508
  Transmission Date: 20091009
  Serious: Yes (Other)
  Sender: FDA-Public Use
  Company Number: GR-ROCHE-632286

PATIENT
  Age: 70 Year
  Sex: Female

DRUGS (1)
  1. BONIVA [Suspect]
     Indication: OSTEOPOROSIS
     Dosage: START DATE: FEB/ MAR-2009.
     Route: 048

REACTIONS (2)
  - AGEUSIA [None]
  - ANOSMIA [None]
